FAERS Safety Report 7325449-9 (Version None)
Quarter: 2011Q1

REPORT INFORMATION
  Report Type: 
  Country: None (occurrence: None)
  Receive Date: 20110302
  Receipt Date: 20110225
  Transmission Date: 20110831
  Serious: Yes (Hospitalization)
  Sender: FDA-Public Use
  Company Number: JP-EISAI INC-E2020-08665-SPO-JP

PATIENT
  Age: 76 Year
  Sex: Female

DRUGS (5)
  1. LASIX [Concomitant]
     Route: 048
  2. URSO 250 [Concomitant]
     Route: 048
  3. SHAKUYAKU-KANZO-TO [Concomitant]
     Route: 048
  4. ALDACTONE [Concomitant]
     Route: 048
  5. ARICEPT [Suspect]
     Indication: DEMENTIA ALZHEIMER'S TYPE
     Route: 048
     Dates: start: 20100728, end: 20110117

REACTIONS (1)
  - DUODENAL PERFORATION [None]
